FAERS Safety Report 4608324-X (Version None)
Quarter: 2005Q2

REPORT INFORMATION
  Report Type: 
  Country: None (occurrence: None)
  Receive Date: 20050301
  Receipt Date: 20040402
  Transmission Date: 20051028
  Serious: Yes (Other)
  Sender: FDA-Public Use
  Company Number: BDI-006004

PATIENT
  Sex: Female

DRUGS (1)
  1. IOPAMIDOL [Suspect]
     Indication: DIAGNOSTIC PROCEDURE
     Dosage: IV
     Route: 042
     Dates: start: 20040401, end: 20040401

REACTIONS (3)
  - DISCOMFORT [None]
  - DYSPHONIA [None]
  - THROAT TIGHTNESS [None]
